FAERS Safety Report 19378182 (Version 1)
Quarter: 2021Q2

REPORT INFORMATION
  Report Type: Report from Study
  Country: US (occurrence: US)
  Receive Date: 20210605
  Receipt Date: 20210605
  Transmission Date: 20210717
  Serious: Yes (Other)
  Sender: FDA-Public Use
  Company Number: NVSC2021US121517

PATIENT
  Sex: Female

DRUGS (1)
  1. COSENTYX [Suspect]
     Active Substance: SECUKINUMAB
     Indication: ANKYLOSING SPONDYLITIS
     Dosage: 300 MG, QMO (BENEATH THE SKIN)
     Route: 058

REACTIONS (6)
  - Diarrhoea [Unknown]
  - Ankylosing spondylitis [Unknown]
  - Injection site pain [Unknown]
  - Abdominal pain upper [Unknown]
  - Depression [Unknown]
  - Nausea [Unknown]
